FAERS Safety Report 24635662 (Version 2)
Quarter: 2025Q4

REPORT INFORMATION
  Report Type: Spontaneous
  Country: US (occurrence: US)
  Receive Date: 20241119
  Receipt Date: 20251120
  Transmission Date: 20260118
  Serious: No
  Sender: CATALYST PHARMA
  Company Number: US-CATALYST PHARMACEUTICALS-US-CATA-24-00895

PATIENT
  Sex: Male
  Weight: 43.692 kg

DRUGS (11)
  1. AGAMREE [Suspect]
     Active Substance: VAMOROLONE
     Indication: Duchenne muscular dystrophy
     Dosage: 5.4 ML DAILY
     Route: 048
     Dates: start: 20240717
  2. AGAMREE [Suspect]
     Active Substance: VAMOROLONE
     Dosage: 6 ML DAILY
     Route: 048
     Dates: start: 20250222, end: 2025
  3. AGAMREE [Suspect]
     Active Substance: VAMOROLONE
     Dosage: 6.6 ML DAILY
     Route: 048
     Dates: start: 2025
  4. EQUAZEN PRO [Concomitant]
     Indication: Attention deficit hyperactivity disorder
     Dosage: 87/279/30 MG ONCE A DAY
     Route: 065
  5. EQUAZEN PRO [Concomitant]
     Dosage: 97-279-30 MG DAILY
     Route: 065
  6. PROBIOTICS CHILDREN^S ORAL PACK [Concomitant]
     Indication: Gastrointestinal disorder prophylaxis
     Dosage: 1 PACK DAILY
     Route: 048
  7. ZOLOFT [Concomitant]
     Active Substance: SERTRALINE HYDROCHLORIDE
     Indication: Affective disorder
     Dosage: 25 MG DAILY
     Route: 048
  8. CALCIUM\MAGNESIUM\ZINC [Concomitant]
     Active Substance: CALCIUM\MAGNESIUM\ZINC
     Indication: Hypovitaminosis
     Dosage: 334-134-5 MG TWICE DAILY
     Route: 048
  9. VITAMIN D3 [Concomitant]
     Active Substance: CHOLECALCIFEROL
     Indication: Hypovitaminosis
     Dosage: 5000 IU (125 MCG) EVERY TWO WEEKS
     Route: 048
  10. NYSTATIN [Concomitant]
     Active Substance: NYSTATIN
     Indication: Fungal infection
     Dosage: 1000 IU/ML DAILY
     Route: 048
  11. NYSTATIN [Concomitant]
     Active Substance: NYSTATIN
     Dosage: 100,000 UNIT/ML DAILY
     Route: 048

REACTIONS (7)
  - Fatigue [Not Recovered/Not Resolved]
  - Gait disturbance [Not Recovered/Not Resolved]
  - Dyspnoea [Not Recovered/Not Resolved]
  - Swelling face [Not Recovered/Not Resolved]
  - Sleep disorder [Not Recovered/Not Resolved]
  - Increased appetite [Not Recovered/Not Resolved]
  - Weight increased [Not Recovered/Not Resolved]

NARRATIVE: CASE EVENT DATE: 20240101
